FAERS Safety Report 19949527 (Version 1)
Quarter: 2021Q4

REPORT INFORMATION
  Report Type: Spontaneous
  Country: US (occurrence: US)
  Receive Date: 20211012
  Receipt Date: 20211012
  Transmission Date: 20220303
  Serious: Yes (Death)
  Sender: FDA-Public Use
  Company Number: None

PATIENT
  Sex: Male
  Weight: 65.7 kg

DRUGS (16)
  1. BENDEKA [Suspect]
     Active Substance: BENDAMUSTINE HYDROCHLORIDE
     Indication: Agranulocytosis
     Dosage: ?          OTHER FREQUENCY:DAYS 1 AND 2;
     Route: 042
  2. GAZYVA [Suspect]
     Active Substance: OBINUTUZUMAB
     Indication: Agranulocytosis
     Dosage: ?          OTHER FREQUENCY:DAY 1;
     Route: 042
  3. DEXAMETHASONE 10 MG/ML VIAL [Concomitant]
  4. DIPHENHYDRAMINE 50 MG/ML VIAL [Concomitant]
  5. ONDANSETRON 4 MG/2 ML VIAL [Concomitant]
  6. ASPIRIN [Concomitant]
     Active Substance: ASPIRIN
  7. ATENOLOL [Concomitant]
     Active Substance: ATENOLOL
  8. ATORVASTATIN CALCIUM [Concomitant]
     Active Substance: ATORVASTATIN CALCIUM
  9. DICLOFENAC SODIUM [Concomitant]
     Active Substance: DICLOFENAC SODIUM
  10. NEURONTIN [Concomitant]
     Active Substance: GABAPENTIN
  11. LEVEMIR [Concomitant]
     Active Substance: INSULIN DETEMIR
  12. METFORMIN HYDROCHLORIDE [Concomitant]
     Active Substance: METFORMIN HYDROCHLORIDE
  13. SYNTHROID [Concomitant]
     Active Substance: LEVOTHYROXINE SODIUM
  14. METOPROLOL TARTRATE [Concomitant]
     Active Substance: METOPROLOL TARTRATE
  15. ZANTAC [Concomitant]
     Active Substance: RANITIDINE HYDROCHLORIDE
  16. NITROGLYCERIN [Concomitant]
     Active Substance: NITROGLYCERIN

REACTIONS (1)
  - Death [None]
